FAERS Safety Report 18784409 (Version 1)
Quarter: 2021Q1

REPORT INFORMATION
  Report Type: Spontaneous
  Country: US (occurrence: US)
  Receive Date: 20210125
  Receipt Date: 20210125
  Transmission Date: 20210419
  Serious: No
  Sender: FDA-Public Use
  Company Number: US-ROCHE-2519123

PATIENT
  Sex: Female
  Weight: 70.37 kg

DRUGS (16)
  1. GEMFIBROZIL. [Concomitant]
     Active Substance: GEMFIBROZIL
  2. RITUXAN [Suspect]
     Active Substance: RITUXIMAB
     Indication: CHRONIC LYMPHOCYTIC LEUKAEMIA
     Dosage: ONGOING; YES
     Route: 042
  3. VALSARTAN. [Concomitant]
     Active Substance: VALSARTAN
  4. DIOVAN [Concomitant]
     Active Substance: VALSARTAN
  5. SIMVASTATIN. [Concomitant]
     Active Substance: SIMVASTATIN
  6. HYDROCHLOROTHIAZIDE. [Concomitant]
     Active Substance: HYDROCHLOROTHIAZIDE
  7. NITROGLYCERIN. [Concomitant]
     Active Substance: NITROGLYCERIN
  8. IMBRUVICA [Concomitant]
     Active Substance: IBRUTINIB
  9. PREDNISONE. [Concomitant]
     Active Substance: PREDNISONE
  10. PREVACID [Concomitant]
     Active Substance: LANSOPRAZOLE
  11. METFORMIN [Concomitant]
     Active Substance: METFORMIN HYDROCHLORIDE
  12. GLIMEPIRIDE. [Concomitant]
     Active Substance: GLIMEPIRIDE
  13. ATENOLOL. [Concomitant]
     Active Substance: ATENOLOL
  14. AMLODIPINE [Concomitant]
     Active Substance: AMLODIPINE BESYLATE
  15. HYDRALAZINE [Concomitant]
     Active Substance: HYDRALAZINE HYDROCHLORIDE
  16. CLONIDINE. [Concomitant]
     Active Substance: CLONIDINE

REACTIONS (2)
  - Contusion [Not Recovered/Not Resolved]
  - Blister [Not Recovered/Not Resolved]
